FAERS Safety Report 9549762 (Version 1)
Quarter: 2013Q3

REPORT INFORMATION
  Report Type: Spontaneous
  Country: US (occurrence: US)
  Receive Date: 20130924
  Receipt Date: 20130924
  Transmission Date: 20140515
  Serious: No
  Sender: FDA-Public Use
  Company Number: US-ALLERGAN-1308502US

PATIENT
  Age: 73 Year
  Sex: Male

DRUGS (1)
  1. LUMIGAN 0.01% [Suspect]
     Indication: PRODUCT USED FOR UNKNOWN INDICATION
     Dosage: UNK
     Dates: end: 20130604

REACTIONS (8)
  - Drug dependence [Unknown]
  - Intraocular pressure increased [Unknown]
  - Hypersensitivity [Unknown]
  - Abnormal sensation in eye [Not Recovered/Not Resolved]
  - Insomnia [Unknown]
  - Vision blurred [Not Recovered/Not Resolved]
  - Eye pain [Recovered/Resolved]
  - Ocular hyperaemia [Recovered/Resolved]
